FAERS Safety Report 5566374-3 (Version None)
Quarter: 2007Q4

REPORT INFORMATION
  Report Type: 
  Country: None (occurrence: None)
  Receive Date: 20071219
  Receipt Date: 20071211
  Transmission Date: 20080405
  Serious: Yes (Other)
  Sender: FDA-Public Use
  Company Number: US-BAYER-200714114BCC

PATIENT
  Age: 76 Year
  Sex: Female
  Weight: 77 kg

DRUGS (7)
  1. ALEVE (CAPLET) [Suspect]
     Indication: FIBROMYALGIA
     Dosage: TOTAL DAILY DOSE: 220 MG  UNIT DOSE: 220 MG
     Route: 048
     Dates: start: 20071205, end: 20071205
  2. ALEVE (CAPLET) [Suspect]
     Dosage: TOTAL DAILY DOSE: 220 MG  UNIT DOSE: 220 MG
     Route: 048
     Dates: start: 20071209, end: 20071211
  3. ALTACE [Concomitant]
  4. LEVOTHYROXINE SODIUM [Concomitant]
  5. FISH OIL [Concomitant]
  6. DRY YEAST RICE [Concomitant]
  7. TRICOR [Concomitant]

REACTIONS (1)
  - BLOOD PRESSURE INCREASED [None]
